FAERS Safety Report 17336878 (Version 1)
Quarter: 2020Q1

REPORT INFORMATION
  Report Type: Report from Study
  Country: US (occurrence: US)
  Receive Date: 20200128
  Receipt Date: 20200128
  Transmission Date: 20200409
  Serious: Yes (Hospitalization)
  Sender: FDA-Public Use
  Company Number: US-ROCHE-2530499

PATIENT
  Age: 67 Year
  Sex: Male
  Weight: 106.69 kg

DRUGS (1)
  1. XOLAIR [Suspect]
     Active Substance: OMALIZUMAB
     Indication: ASTHMA
     Dosage: ONGOING: YES
     Route: 058
     Dates: start: 2019

REACTIONS (3)
  - Pneumonia [Not Recovered/Not Resolved]
  - Product dose omission [Unknown]
  - Gastric infection [Recovered/Resolved]

NARRATIVE: CASE EVENT DATE: 202001
